FAERS Safety Report 5800241-2 (Version None)
Quarter: 2008Q3

REPORT INFORMATION
  Report Type: 
  Country: None (occurrence: None)
  Receive Date: 20080703
  Receipt Date: 20080623
  Transmission Date: 20090109
  Serious: Yes (Hospitalization, Other)
  Sender: FDA-Public Use
  Company Number: CA-SANOFI-SYNTHELABO-D01200801407

PATIENT
  Sex: Male
  Weight: 63 kg

DRUGS (6)
  1. CLOPIDOGREL [Suspect]
     Indication: ACUTE CORONARY SYNDROME
     Dosage: 300 MG (+PLACEBO) D1 FOLLOWED BY 75 MG (+PLACEBO) D2 TO D7; 75 MG FROM D8 TO 30
     Route: 048
  2. TNT [Concomitant]
     Dosage: UNK
     Route: 042
  3. HEPARIN [Concomitant]
     Dosage: UNK
     Route: 042
  4. METOPROLOL SUCCINATE [Concomitant]
  5. CLOPIDOGREL [Suspect]
     Indication: ACUTE CORONARY SYNDROME
     Dosage: 600 MG LD D1 FOLLOWED BY 150 MG FROM D2 TO D7; 75 MG FROM D8 TO 30
     Route: 048
     Dates: start: 20080205, end: 20080205
  6. ASA LOW DOSE [Concomitant]
     Indication: ACUTE CORONARY SYNDROME
     Dosage: AT LEAST 300 MG D1; 75-100 MG FROM D2 TO D30
     Route: 048
     Dates: start: 20080205

REACTIONS (3)
  - HAEMOSTASIS [None]
  - OPERATIVE HAEMORRHAGE [None]
  - RESPIRATORY FAILURE [None]
